FAERS Safety Report 24281445 (Version 6)
Quarter: 2024Q4

REPORT INFORMATION
  Report Type: Spontaneous
  Country: JP (occurrence: JP)
  Receive Date: 20240904
  Receipt Date: 20241226
  Transmission Date: 20250115
  Serious: Yes (Death, Hospitalization, Other)
  Sender: GALDERMA
  Company Number: JP-GALDERMA-JP2024013262

PATIENT

DRUGS (12)
  1. NEMOLIZUMAB [Suspect]
     Active Substance: NEMOLIZUMAB
     Indication: Pruritus
     Dosage: 60 MILLIGRAM
     Route: 058
     Dates: start: 20240816, end: 20240816
  2. NEMOLIZUMAB [Suspect]
     Active Substance: NEMOLIZUMAB
     Indication: Neurodermatitis
  3. PREDNISOLONE [Concomitant]
     Active Substance: PREDNISOLONE
     Indication: Pemphigoid
     Dosage: 20 MILLIGRAM
     Route: 048
     Dates: start: 20240317, end: 20240323
  4. PREDNISOLONE [Concomitant]
     Active Substance: PREDNISOLONE
     Dosage: 15 MILLIGRAM
     Route: 048
     Dates: start: 20240324, end: 20240406
  5. PREDNISOLONE [Concomitant]
     Active Substance: PREDNISOLONE
     Dosage: 12.5 MILLIGRAM
     Route: 048
     Dates: start: 20240407, end: 20240421
  6. PREDNISOLONE [Concomitant]
     Active Substance: PREDNISOLONE
     Dosage: 10 MILLIGRAM
     Route: 048
     Dates: start: 20240422
  7. BEPOTASTINE BESYLATE [Concomitant]
     Active Substance: BEPOTASTINE BESYLATE
     Indication: Pruritus
     Dosage: UNK
     Route: 048
     Dates: start: 2024, end: 2024
  8. UNSPECIFIED INGREDIENT [Concomitant]
     Active Substance: UNSPECIFIED INGREDIENT
     Indication: Pruritus
     Dosage: UNK
     Route: 061
     Dates: start: 2024, end: 2024
  9. MITIGLINIDE [Concomitant]
     Active Substance: MITIGLINIDE
     Indication: Steroid diabetes
     Dosage: 30 MILLIGRAM
     Route: 048
     Dates: start: 20240411
  10. AMLODIPINE BESYLATE [Concomitant]
     Active Substance: AMLODIPINE BESYLATE
     Indication: Hypertension
     Route: 065
  11. NICOTINAMIDE [Concomitant]
     Active Substance: NIACINAMIDE
     Indication: Pemphigoid
     Dosage: 1500 MILLIGRAM
     Route: 048
     Dates: start: 20240317
  12. DOXYCYCLINE HYDROCHLORIDE [Concomitant]
     Active Substance: DOXYCYCLINE HYDROCHLORIDE
     Indication: Pemphigoid
     Dosage: 200 MILLIGRAM
     Route: 048
     Dates: start: 20240317

REACTIONS (3)
  - Cellulitis [Fatal]
  - Septic shock [Fatal]
  - Off label use [Recovered/Resolved]

NARRATIVE: CASE EVENT DATE: 20240816
